FAERS Safety Report 9199225 (Version 1)
Quarter: 2013Q1

REPORT INFORMATION
  Report Type: Spontaneous
  Country: US (occurrence: US)
  Receive Date: 20130329
  Receipt Date: 20130329
  Transmission Date: 20140127
  Serious: No
  Sender: FDA-Public Use
  Company Number: US-009507513-1303USA013644

PATIENT
  Age: 90 Year
  Sex: Male

DRUGS (2)
  1. DULERA [Suspect]
     Indication: WHEEZING
     Dosage: UNK DF, UNK
     Route: 055
  2. DULERA [Suspect]
     Indication: COUGH
     Dosage: 2 PUFFS, AS NEEDED
     Route: 055

REACTIONS (2)
  - Drug dose omission [Unknown]
  - Inappropriate schedule of drug administration [Unknown]
